FAERS Safety Report 14454916 (Version 3)
Quarter: 2018Q1

REPORT INFORMATION
  Report Type: Spontaneous
  Country: JP (occurrence: JP)
  Receive Date: 20180129
  Receipt Date: 20180131
  Transmission Date: 20180509
  Serious: Yes (Hospitalization, Other)
  Sender: FDA-Public Use
  Company Number: PHJP2018JP001821

PATIENT
  Sex: Male
  Weight: 55 kg

DRUGS (27)
  1. COMTAN [Suspect]
     Active Substance: ENTACAPONE
     Dosage: 1000 MG, QD
     Route: 048
  2. AMANTADINE. [Suspect]
     Active Substance: AMANTADINE HYDROCHLORIDE
     Indication: PARKINSON^S DISEASE
     Dosage: 200 MG, QD
     Route: 048
  3. LEVODOPA [Concomitant]
     Active Substance: LEVODOPA
     Indication: PARKINSON^S DISEASE
     Dosage: 500 MG, UNK
     Route: 065
  4. ROTIGOTINE [Concomitant]
     Active Substance: ROTIGOTINE
     Dosage: 9 MG, UNK
     Route: 062
  5. CABERGOLINE. [Concomitant]
     Active Substance: CABERGOLINE
     Dosage: 1 MG, UNK
     Route: 048
  6. ROTIGOTINE [Concomitant]
     Active Substance: ROTIGOTINE
     Dosage: 13.5 MG, UNK
     Route: 062
  7. ROTIGOTINE [Concomitant]
     Active Substance: ROTIGOTINE
     Dosage: 9 MG, UNK
     Route: 062
  8. TRIHEXYPHENIDYL HYDROCHLORIDE. [Concomitant]
     Active Substance: TRIHEXYPHENIDYL HYDROCHLORIDE
     Indication: PARKINSON^S DISEASE
     Dosage: 6 MG, UNK
     Route: 048
  9. TRIHEXYPHENIDYL HYDROCHLORIDE. [Concomitant]
     Active Substance: TRIHEXYPHENIDYL HYDROCHLORIDE
     Dosage: 6 MG, UNK
     Route: 048
  10. ROTIGOTINE [Concomitant]
     Active Substance: ROTIGOTINE
     Indication: PARKINSON^S DISEASE
     Dosage: 4.5 MG, UNK
     Route: 062
  11. ROTIGOTINE [Concomitant]
     Active Substance: ROTIGOTINE
     Dosage: 18 MG, UNK
     Route: 062
  12. COMTAN [Suspect]
     Active Substance: ENTACAPONE
     Dosage: 500 MG, QD
     Route: 048
  13. PRAMIPEXOLE. [Concomitant]
     Active Substance: PRAMIPEXOLE
     Indication: PRODUCT USED FOR UNKNOWN INDICATION
     Dosage: 0.25 MG, QD
     Route: 065
  14. ROTIGOTINE [Concomitant]
     Active Substance: ROTIGOTINE
     Dosage: 4.5 MG, UNK
     Route: 062
  15. ROTIGOTINE [Concomitant]
     Active Substance: ROTIGOTINE
     Dosage: 9 MG, UNK
     Route: 062
  16. TRIHEXYPHENIDYL HYDROCHLORIDE. [Concomitant]
     Active Substance: TRIHEXYPHENIDYL HYDROCHLORIDE
     Dosage: 5 MG, UNK
     Route: 048
  17. LEVODOPA [Concomitant]
     Active Substance: LEVODOPA
     Dosage: 800 MG, UNK
     Route: 065
  18. CABERGOLINE. [Concomitant]
     Active Substance: CABERGOLINE
     Indication: PARKINSON^S DISEASE
     Dosage: 2 MG, UNK
     Route: 048
  19. COMTAN [Suspect]
     Active Substance: ENTACAPONE
     Indication: PARKINSON^S DISEASE
     Dosage: 500 MG, QD
     Route: 048
  20. TRIHEXYPHENIDYL HYDROCHLORIDE. [Concomitant]
     Active Substance: TRIHEXYPHENIDYL HYDROCHLORIDE
     Dosage: 4 MG, UNK
     Route: 048
  21. TRIHEXYPHENIDYL HYDROCHLORIDE. [Concomitant]
     Active Substance: TRIHEXYPHENIDYL HYDROCHLORIDE
     Dosage: 2 MG, UNK
     Route: 048
  22. TRIHEXYPHENIDYL HYDROCHLORIDE. [Concomitant]
     Active Substance: TRIHEXYPHENIDYL HYDROCHLORIDE
     Dosage: 4 MG, UNK
     Route: 048
  23. TRIHEXYPHENIDYL HYDROCHLORIDE. [Concomitant]
     Active Substance: TRIHEXYPHENIDYL HYDROCHLORIDE
     Dosage: 6 MG, UNK
     Route: 048
  24. ISTRADEFYLLINE [Concomitant]
     Active Substance: ISTRADEFYLLINE
     Indication: PARKINSON^S DISEASE
     Dosage: 20 MG, UNK
     Route: 048
  25. AMANTADINE. [Suspect]
     Active Substance: AMANTADINE HYDROCHLORIDE
     Dosage: 100 MG, QD
     Route: 048
  26. LEVODOPA [Concomitant]
     Active Substance: LEVODOPA
     Dosage: 500 MG, UNK
     Route: 065
  27. ROTIGOTINE [Concomitant]
     Active Substance: ROTIGOTINE
     Dosage: 4.5 MG, UNK
     Route: 062

REACTIONS (14)
  - Neuroleptic malignant syndrome [Unknown]
  - Dysphagia [Unknown]
  - On and off phenomenon [Unknown]
  - Somnolence [Recovered/Resolved]
  - Dyslalia [Unknown]
  - Muscle rigidity [Unknown]
  - Delusion [Recovered/Resolved]
  - Diarrhoea [Unknown]
  - Hallucination [Recovered/Resolved]
  - Depression [Unknown]
  - Akinesia [Unknown]
  - Anxiety [Unknown]
  - Hallucination, visual [Unknown]
  - Constipation [Unknown]
